FAERS Safety Report 7015099-6 (Version None)
Quarter: 2010Q3

REPORT INFORMATION
  Report Type: 
  Country: None (occurrence: None)
  Receive Date: 20100927
  Receipt Date: 20100517
  Transmission Date: 20110219
  Serious: No
  Sender: FDA-Public Use
  Company Number: US-ASTRAZENECA-2010SE22676

PATIENT
  Sex: Male

DRUGS (1)
  1. ARIMIDEX [Suspect]
     Route: 048

REACTIONS (2)
  - ERECTILE DYSFUNCTION [None]
  - HORMONE LEVEL ABNORMAL [None]
